FAERS Safety Report 17096809 (Version 2)
Quarter: 2019Q4

REPORT INFORMATION
  Report Type: Spontaneous
  Country: US (occurrence: US)
  Receive Date: 20191202
  Receipt Date: 20191212
  Transmission Date: 20200122
  Serious: No
  Sender: FDA-Public Use
  Company Number: US-CELGENEUS-USA-20191110292

PATIENT
  Sex: Female

DRUGS (2)
  1. METHOTREXATE. [Suspect]
     Active Substance: METHOTREXATE
     Indication: PSORIASIS
     Dosage: 2.5 MILLIGRAM
     Route: 048
     Dates: start: 20190411
  2. OTEZLA [Suspect]
     Active Substance: APREMILAST
     Indication: PSORIASIS
     Dosage: DAY 1: 10MG IN AM. DAY 2: 10MG IN AM + PM. DAY 3: 10MG IN AM + 20MG IN PM. DAY 4: 20MG IN AM + PM. D
     Route: 048
     Dates: start: 201909

REACTIONS (3)
  - Nausea [Recovered/Resolved]
  - Muscle spasms [Recovered/Resolved]
  - Headache [Unknown]

NARRATIVE: CASE EVENT DATE: 2019
